FAERS Safety Report 4697983-1 (Version None)
Quarter: 2005Q2

REPORT INFORMATION
  Report Type: 
  Country: None (occurrence: None)
  Receive Date: 20050622
  Receipt Date: 20050622
  Transmission Date: 20051028
  Serious: Yes (Life-Threatening)
  Sender: FDA-Public Use
  Company Number: None

PATIENT
  Age: 31 Year
  Sex: Male
  Weight: 117.9352 kg

DRUGS (1)
  1. OXYCONTIN [Suspect]

REACTIONS (4)
  - CARDIAC FAILURE [None]
  - DRUG DEPENDENCE [None]
  - DYSPNOEA [None]
  - HYPOAESTHESIA [None]
